FAERS Safety Report 25491802 (Version 2)
Quarter: 2025Q3

REPORT INFORMATION
  Report Type: Spontaneous
  Country: CA (occurrence: CA)
  Receive Date: 20250630
  Receipt Date: 20250725
  Transmission Date: 20251021
  Serious: Yes (Death, Life-Threatening, Hospitalization, Disabling, Congenital Anomaly, Other)
  Sender: Haleon PLC
  Company Number: CA-HALEON-2249350

PATIENT
  Age: 40 Year
  Sex: Female
  Weight: 96 kg

DRUGS (142)
  1. DICLOFENAC [Suspect]
     Active Substance: DICLOFENAC
     Indication: Product used for unknown indication
  2. DICLOFENAC [Suspect]
     Active Substance: DICLOFENAC
  3. CELECOXIB [Suspect]
     Active Substance: CELECOXIB
     Indication: Product used for unknown indication
  4. CELECOXIB [Suspect]
     Active Substance: CELECOXIB
  5. CELECOXIB [Suspect]
     Active Substance: CELECOXIB
     Dosage: ROA: ORAL
  6. CELECOXIB [Suspect]
     Active Substance: CELECOXIB
     Dosage: ROA: UNKNOWN
  7. CELECOXIB [Suspect]
     Active Substance: CELECOXIB
  8. CELECOXIB [Suspect]
     Active Substance: CELECOXIB
  9. DICLOFENAC [Suspect]
     Active Substance: DICLOFENAC
     Indication: Product used for unknown indication
  10. VOLTAREN ARTHRITIS PAIN [Suspect]
     Active Substance: DICLOFENAC SODIUM
     Indication: Product used for unknown indication
  11. VOLTAREN ARTHRITIS PAIN [Suspect]
     Active Substance: DICLOFENAC SODIUM
  12. ATOMOXETINE [Suspect]
     Active Substance: ATOMOXETINE
     Indication: Migraine
  13. ATOMOXETINE [Suspect]
     Active Substance: ATOMOXETINE
  14. ATOMOXETINE [Suspect]
     Active Substance: ATOMOXETINE
  15. COSENTYX [Suspect]
     Active Substance: SECUKINUMAB
     Indication: Psoriatic arthropathy
  16. COSENTYX [Suspect]
     Active Substance: SECUKINUMAB
     Indication: Product used for unknown indication
  17. COSENTYX [Suspect]
     Active Substance: SECUKINUMAB
  18. OXYCODONE [Suspect]
     Active Substance: OXYCODONE
     Indication: Product used for unknown indication
  19. PLAQUENIL [Suspect]
     Active Substance: HYDROXYCHLOROQUINE SULFATE
     Indication: Rheumatoid arthritis
  20. PLAQUENIL [Suspect]
     Active Substance: HYDROXYCHLOROQUINE SULFATE
     Indication: Product used for unknown indication
  21. PREDNISONE [Suspect]
     Active Substance: PREDNISONE
     Indication: Rheumatoid arthritis
  22. PREDNISONE [Suspect]
     Active Substance: PREDNISONE
  23. PREDNISONE [Suspect]
     Active Substance: PREDNISONE
     Route: 048
  24. PREDNISONE [Suspect]
     Active Substance: PREDNISONE
  25. PREDNISONE [Suspect]
     Active Substance: PREDNISONE
  26. PREDNISONE [Suspect]
     Active Substance: PREDNISONE
  27. PSEUDOEPHEDRINE [Suspect]
     Active Substance: PSEUDOEPHEDRINE
     Indication: Rheumatoid arthritis
  28. PSEUDOEPHEDRINE [Suspect]
     Active Substance: PSEUDOEPHEDRINE
  29. PSEUDOEPHEDRINE [Suspect]
     Active Substance: PSEUDOEPHEDRINE
  30. PSEUDOEPHEDRINE [Suspect]
     Active Substance: PSEUDOEPHEDRINE
  31. PSEUDOEPHEDRINE [Suspect]
     Active Substance: PSEUDOEPHEDRINE
  32. RANITIDINE [Suspect]
     Active Substance: RANITIDINE
     Indication: Product used for unknown indication
  33. RIBOFLAVIN [Suspect]
     Active Substance: RIBOFLAVIN
     Indication: Product used for unknown indication
  34. AIMOVIG [Suspect]
     Active Substance: ERENUMAB-AOOE
     Indication: Product used for unknown indication
  35. AIMOVIG [Suspect]
     Active Substance: ERENUMAB-AOOE
  36. AIMOVIG [Suspect]
     Active Substance: ERENUMAB-AOOE
  37. AIMOVIG [Suspect]
     Active Substance: ERENUMAB-AOOE
  38. ALENDRONIC ACID [Suspect]
     Active Substance: ALENDRONIC ACID
     Indication: Rheumatoid arthritis
  39. ALENDRONIC ACID [Suspect]
     Active Substance: ALENDRONIC ACID
     Indication: Product used for unknown indication
     Route: 048
  40. ALENDRONIC ACID [Suspect]
     Active Substance: ALENDRONIC ACID
  41. ALENDRONIC ACID [Suspect]
     Active Substance: ALENDRONIC ACID
     Route: 016
  42. CAFFEINE [Suspect]
     Active Substance: CAFFEINE
     Indication: Rheumatoid arthritis
  43. CAFFEINE [Suspect]
     Active Substance: CAFFEINE
  44. CAFFEINE [Suspect]
     Active Substance: CAFFEINE
  45. CAFFEINE [Suspect]
     Active Substance: CAFFEINE
  46. CAFFEINE [Suspect]
     Active Substance: CAFFEINE
  47. CANDESARTAN [Suspect]
     Active Substance: CANDESARTAN
     Indication: Product used for unknown indication
  48. CANDESARTAN [Suspect]
     Active Substance: CANDESARTAN
     Indication: Migraine
  49. LEFLUNOMIDE [Suspect]
     Active Substance: LEFLUNOMIDE
     Indication: Product used for unknown indication
  50. LEFLUNOMIDE [Suspect]
     Active Substance: LEFLUNOMIDE
     Indication: Rheumatoid arthritis
     Dosage: ROA: UNKNOWN
  51. LEFLUNOMIDE [Suspect]
     Active Substance: LEFLUNOMIDE
  52. OXYCODONE TEREPHTHALATE [Suspect]
     Active Substance: OXYCODONE TEREPHTHALATE
     Indication: Product used for unknown indication
     Route: 048
  53. OXYCODONE TEREPHTHALATE [Suspect]
     Active Substance: OXYCODONE TEREPHTHALATE
     Indication: Rheumatoid arthritis
     Route: 048
  54. PERIOGARD [Suspect]
     Active Substance: CHLORHEXIDINE GLUCONATE
     Indication: Product used for unknown indication
  55. PHTHALYLSULFATHIAZOLE [Suspect]
     Active Substance: PHTHALYLSULFATHIAZOLE
     Indication: Rheumatoid arthritis
  56. PHTHALYLSULFATHIAZOLE [Suspect]
     Active Substance: PHTHALYLSULFATHIAZOLE
     Route: 065
  57. PHTHALYLSULFATHIAZOLE [Suspect]
     Active Substance: PHTHALYLSULFATHIAZOLE
     Dosage: ROA: UNKNOWN
  58. PHTHALYLSULFATHIAZOLE [Suspect]
     Active Substance: PHTHALYLSULFATHIAZOLE
  59. PHTHALYLSULFATHIAZOLE [Suspect]
     Active Substance: PHTHALYLSULFATHIAZOLE
  60. PSEUDOEPHEDRINE HYDROCHLORIDE [Suspect]
     Active Substance: PSEUDOEPHEDRINE HYDROCHLORIDE
     Indication: Rheumatoid arthritis
  61. RAMIPRIL [Suspect]
     Active Substance: RAMIPRIL
     Indication: Rheumatoid arthritis
  62. RAMIPRIL [Suspect]
     Active Substance: RAMIPRIL
  63. RAMIPRIL [Suspect]
     Active Substance: RAMIPRIL
  64. CETIRIZINE HYDROCHLORIDE\PSEUDOEPHEDRINE HYDROCHLORIDE [Suspect]
     Active Substance: CETIRIZINE HYDROCHLORIDE\PSEUDOEPHEDRINE HYDROCHLORIDE
     Indication: Rheumatoid arthritis
  65. CETIRIZINE HYDROCHLORIDE\PSEUDOEPHEDRINE HYDROCHLORIDE [Suspect]
     Active Substance: CETIRIZINE HYDROCHLORIDE\PSEUDOEPHEDRINE HYDROCHLORIDE
  66. CETIRIZINE HYDROCHLORIDE\PSEUDOEPHEDRINE HYDROCHLORIDE [Suspect]
     Active Substance: CETIRIZINE HYDROCHLORIDE\PSEUDOEPHEDRINE HYDROCHLORIDE
  67. CETIRIZINE HYDROCHLORIDE\PSEUDOEPHEDRINE HYDROCHLORIDE [Suspect]
     Active Substance: CETIRIZINE HYDROCHLORIDE\PSEUDOEPHEDRINE HYDROCHLORIDE
  68. CETIRIZINE HYDROCHLORIDE\PSEUDOEPHEDRINE HYDROCHLORIDE [Suspect]
     Active Substance: CETIRIZINE HYDROCHLORIDE\PSEUDOEPHEDRINE HYDROCHLORIDE
  69. CETIRIZINE HYDROCHLORIDE\PSEUDOEPHEDRINE HYDROCHLORIDE [Suspect]
     Active Substance: CETIRIZINE HYDROCHLORIDE\PSEUDOEPHEDRINE HYDROCHLORIDE
  70. CETIRIZINE HYDROCHLORIDE\PSEUDOEPHEDRINE HYDROCHLORIDE [Suspect]
     Active Substance: CETIRIZINE HYDROCHLORIDE\PSEUDOEPHEDRINE HYDROCHLORIDE
  71. CETIRIZINE HYDROCHLORIDE\PSEUDOEPHEDRINE HYDROCHLORIDE [Suspect]
     Active Substance: CETIRIZINE HYDROCHLORIDE\PSEUDOEPHEDRINE HYDROCHLORIDE
  72. REMICADE [Suspect]
     Active Substance: INFLIXIMAB
     Indication: Rheumatoid arthritis
  73. RITUXIMAB [Suspect]
     Active Substance: RITUXIMAB
     Indication: Rheumatoid arthritis
  74. RITUXIMAB [Suspect]
     Active Substance: RITUXIMAB
  75. RITUXIMAB [Suspect]
     Active Substance: RITUXIMAB
  76. RITUXIMAB [Suspect]
     Active Substance: RITUXIMAB
  77. RITUXIMAB [Suspect]
     Active Substance: RITUXIMAB
  78. RITUXIMAB [Suspect]
     Active Substance: RITUXIMAB
  79. RITUXIMAB [Suspect]
     Active Substance: RITUXIMAB
  80. RITUXIMAB [Suspect]
     Active Substance: RITUXIMAB
  81. RITUXIMAB [Suspect]
     Active Substance: RITUXIMAB
  82. RITUXIMAB [Suspect]
     Active Substance: RITUXIMAB
     Dosage: ROA: UNKNOWN
  83. RITUXIMAB [Suspect]
     Active Substance: RITUXIMAB
     Dosage: ROA: UNKNOWN
  84. RITUXIMAB [Suspect]
     Active Substance: RITUXIMAB
  85. RITUXIMAB [Suspect]
     Active Substance: RITUXIMAB
  86. RITUXIMAB [Suspect]
     Active Substance: RITUXIMAB
  87. RITUXIMAB [Suspect]
     Active Substance: RITUXIMAB
  88. RITUXIMAB [Suspect]
     Active Substance: RITUXIMAB
  89. RITUXIMAB [Suspect]
     Active Substance: RITUXIMAB
  90. RITUXIMAB [Suspect]
     Active Substance: RITUXIMAB
  91. RITUXIMAB [Suspect]
     Active Substance: RITUXIMAB
     Dosage: ROA: UNKNOWN
  92. RITUXIMAB [Suspect]
     Active Substance: RITUXIMAB
  93. RITUXIMAB [Suspect]
     Active Substance: RITUXIMAB
     Dosage: ROA: UNKNOWN
  94. RITUXIMAB [Suspect]
     Active Substance: RITUXIMAB
  95. RITUXIMAB [Suspect]
     Active Substance: RITUXIMAB
  96. RITUXIMAB [Suspect]
     Active Substance: RITUXIMAB
  97. SULFASALAZINE [Suspect]
     Active Substance: SULFASALAZINE
     Indication: Rheumatoid arthritis
  98. SIMPONI [Suspect]
     Active Substance: GOLIMUMAB
     Indication: Rheumatoid arthritis
     Route: 058
  99. SIMPONI [Suspect]
     Active Substance: GOLIMUMAB
     Indication: Prostatic specific antigen
     Route: 058
  100. SIMPONI [Suspect]
     Active Substance: GOLIMUMAB
     Route: 058
  101. SIMPONI [Suspect]
     Active Substance: GOLIMUMAB
     Route: 058
  102. SIMPONI [Suspect]
     Active Substance: GOLIMUMAB
     Route: 058
  103. SIRUKUMAB [Suspect]
     Active Substance: SIRUKUMAB
     Indication: Product used for unknown indication
  104. SIRUKUMAB [Suspect]
     Active Substance: SIRUKUMAB
  105. SIRUKUMAB [Suspect]
     Active Substance: SIRUKUMAB
  106. SIRUKUMAB [Suspect]
     Active Substance: SIRUKUMAB
  107. GOLD SODIUM THIOMALATE [Suspect]
     Active Substance: GOLD SODIUM THIOMALATE
     Indication: Product used for unknown indication
  108. GOLD SODIUM THIOMALATE [Suspect]
     Active Substance: GOLD SODIUM THIOMALATE
  109. GOLD SODIUM THIOMALATE [Suspect]
     Active Substance: GOLD SODIUM THIOMALATE
     Route: 058
  110. SULFAMETHOXAZOLE\TRIMETHOPRIM [Suspect]
     Active Substance: SULFAMETHOXAZOLE\TRIMETHOPRIM
     Indication: Rheumatoid arthritis
  111. SULFAMETHOXAZOLE\TRIMETHOPRIM [Suspect]
     Active Substance: SULFAMETHOXAZOLE\TRIMETHOPRIM
     Indication: Product used for unknown indication
  112. SULFASALAZINE [Suspect]
     Active Substance: SULFASALAZINE
     Indication: Rheumatoid arthritis
  113. SULFASALAZINE [Suspect]
     Active Substance: SULFASALAZINE
     Dosage: ROA: UNKNOWN
  114. SULFASALAZINE [Suspect]
     Active Substance: SULFASALAZINE
  115. SULFASALAZINE [Suspect]
     Active Substance: SULFASALAZINE
     Dosage: ROA: UNKNOWN
  116. SULFASALAZINE [Suspect]
     Active Substance: SULFASALAZINE
     Dosage: ROA: UNKNOWN
  117. SULFASALAZINE [Suspect]
     Active Substance: SULFASALAZINE
  118. SULFASALAZINE [Suspect]
     Active Substance: SULFASALAZINE
  119. SULFASALAZINE [Suspect]
     Active Substance: SULFASALAZINE
     Dosage: ROA: UNKNOWN
  120. SULFASALAZINE [Suspect]
     Active Substance: SULFASALAZINE
     Dosage: ROA: UNKNOWN
  121. SULFASALAZINE [Suspect]
     Active Substance: SULFASALAZINE
     Route: 048
  122. SULFASALAZINE [Suspect]
     Active Substance: SULFASALAZINE
  123. SULFASALAZINE [Suspect]
     Active Substance: SULFASALAZINE
     Route: 058
  124. TRAMADOL HYDROCHLORIDE [Suspect]
     Active Substance: TRAMADOL HYDROCHLORIDE
     Indication: Product used for unknown indication
  125. XELJANZ [Suspect]
     Active Substance: TOFACITINIB CITRATE
     Indication: Rheumatoid arthritis
     Dosage: ROA: UNKNOWN
  126. XELJANZ [Suspect]
     Active Substance: TOFACITINIB CITRATE
  127. XELJANZ [Suspect]
     Active Substance: TOFACITINIB CITRATE
     Dosage: ROA: UNKNOWN
  128. HUMIRA [Suspect]
     Active Substance: ADALIMUMAB
     Indication: Rheumatoid arthritis
  129. HUMIRA [Suspect]
     Active Substance: ADALIMUMAB
  130. HUMIRA [Suspect]
     Active Substance: ADALIMUMAB
  131. HUMIRA [Suspect]
     Active Substance: ADALIMUMAB
  132. HUMIRA [Suspect]
     Active Substance: ADALIMUMAB
  133. HUMIRA [Suspect]
     Active Substance: ADALIMUMAB
  134. LEFLUNOMIDE [Suspect]
     Active Substance: LEFLUNOMIDE
     Indication: Rheumatoid arthritis
  135. STELARA [Suspect]
     Active Substance: USTEKINUMAB
     Indication: Product used for unknown indication
  136. CERTOLIZUMAB PEGOL [Suspect]
     Active Substance: CERTOLIZUMAB PEGOL
     Indication: Product used for unknown indication
  137. CERTOLIZUMAB PEGOL [Suspect]
     Active Substance: CERTOLIZUMAB PEGOL
  138. CERTOLIZUMAB PEGOL [Suspect]
     Active Substance: CERTOLIZUMAB PEGOL
     Route: 058
  139. CERTOLIZUMAB PEGOL [Suspect]
     Active Substance: CERTOLIZUMAB PEGOL
     Route: 058
  140. CETIRIZINE HYDROCHLORIDE\PSEUDOEPHEDRINE HYDROCHLORIDE [Suspect]
     Active Substance: CETIRIZINE HYDROCHLORIDE\PSEUDOEPHEDRINE HYDROCHLORIDE
     Indication: Rheumatoid arthritis
  141. VOLTAREN [Suspect]
     Active Substance: DICLOFENAC SODIUM
     Indication: Product used for unknown indication
  142. VOLTAREN [Suspect]
     Active Substance: DICLOFENAC SODIUM

REACTIONS (41)
  - Blepharospasm [Fatal]
  - Rash [Fatal]
  - Abdominal discomfort [Fatal]
  - Treatment failure [Fatal]
  - Abdominal pain upper [Fatal]
  - Product label confusion [Fatal]
  - Alopecia [Fatal]
  - Anti-cyclic citrullinated peptide antibody positive [Fatal]
  - Arthralgia [Fatal]
  - Asthenia [Fatal]
  - C-reactive protein abnormal [Fatal]
  - Condition aggravated [Fatal]
  - Diarrhoea [Fatal]
  - Drug hypersensitivity [Fatal]
  - Obesity [Fatal]
  - Pain in extremity [Fatal]
  - Peripheral venous disease [Fatal]
  - Sleep disorder [Fatal]
  - Synovitis [Fatal]
  - Dry mouth [Fatal]
  - Exposure during pregnancy [Fatal]
  - Finger deformity [Fatal]
  - Gait inability [Fatal]
  - Gastrointestinal disorder [Fatal]
  - Grip strength decreased [Fatal]
  - Headache [Fatal]
  - Hepatic enzyme increased [Fatal]
  - Hypercholesterolaemia [Fatal]
  - Hypersensitivity [Fatal]
  - Impaired healing [Fatal]
  - Infusion related reaction [Fatal]
  - Insomnia [Fatal]
  - Joint swelling [Fatal]
  - Lung disorder [Fatal]
  - Muscle injury [Fatal]
  - Musculoskeletal pain [Fatal]
  - Musculoskeletal stiffness [Fatal]
  - Nail disorder [Fatal]
  - Neck pain [Fatal]
  - Off label use [Fatal]
  - Night sweats [Fatal]
